FAERS Safety Report 9144859 (Version 3)
Quarter: 2013Q2

REPORT INFORMATION
  Report Type: Spontaneous
  Country: US (occurrence: US)
  Receive Date: 20130307
  Receipt Date: 20130425
  Transmission Date: 20140414
  Serious: No
  Sender: FDA-Public Use
  Company Number: US-009507513-1303USA002175

PATIENT
  Sex: Male
  Weight: 113.38 kg

DRUGS (2)
  1. PEGINTRON [Suspect]
     Indication: HEPATITIS C
     Dosage: REDIPEN
     Dates: start: 20130214
  2. REBETOL [Suspect]
     Indication: HEPATITIS C
     Dosage: UNK
     Route: 048
     Dates: start: 20130214

REACTIONS (9)
  - Laboratory test abnormal [Unknown]
  - Influenza like illness [Unknown]
  - Chills [Unknown]
  - Pain [Unknown]
  - Malaise [Unknown]
  - Rash [Recovered/Resolved]
  - Weight decreased [Unknown]
  - Decreased appetite [Unknown]
  - Weight decreased [Unknown]
